FAERS Safety Report 4993126-5 (Version None)
Quarter: 2006Q1

REPORT INFORMATION
  Report Type: 
  Country: None (occurrence: None)
  Receive Date: 20060313
  Receipt Date: 20051116
  Transmission Date: 20060701
  Serious: No
  Sender: FDA-Public Use
  Company Number: 2005-BP-18839BP

PATIENT
  Sex: Female

DRUGS (11)
  1. SPIRIVA [Suspect]
     Indication: BRONCHIECTASIS
     Dosage: 18 MCG (18 MCG), IH
     Route: 055
     Dates: start: 20051001
  2. DUONEB (COMBIVENT/01261001/) [Concomitant]
  3. ADVAIR (SERETIDE) [Concomitant]
  4. PLAVIX [Concomitant]
  5. TOPROL-XL [Concomitant]
  6. LASIX [Concomitant]
  7. POTASSIUM [Concomitant]
  8. ASPIRIN [Concomitant]
  9. MUCINEX (GUAIFENESIN) [Concomitant]
  10. LESCOL [Concomitant]
  11. MICARDIS [Concomitant]

REACTIONS (1)
  - DYSGEUSIA [None]
